FAERS Safety Report 18632800 (Version 1)
Quarter: 2020Q4

REPORT INFORMATION
  Report Type: Spontaneous
  Country: IR (occurrence: IR)
  Receive Date: 20201218
  Receipt Date: 20201218
  Transmission Date: 20210114
  Serious: Yes (Other)
  Sender: FDA-Public Use
  Company Number: IR-SUN PHARMACEUTICAL INDUSTRIES LTD-2020R1-271704

PATIENT
  Age: 37 Year
  Sex: Female

DRUGS (1)
  1. HYDROXYCHLOROQUINE [Suspect]
     Active Substance: HYDROXYCHLOROQUINE
     Indication: SKIN LESION
     Dosage: 200 MILLIGRAM, DAILY
     Route: 065

REACTIONS (3)
  - Hallucinations, mixed [Recovered/Resolved]
  - Loss of consciousness [Recovered/Resolved]
  - Nightmare [Recovered/Resolved]
